FAERS Safety Report 15141667 (Version 1)
Quarter: 2018Q3

REPORT INFORMATION
  Report Type: Spontaneous
  Country: CA (occurrence: CA)
  Receive Date: 20180713
  Receipt Date: 20180713
  Transmission Date: 20181010
  Serious: Yes (Other)
  Sender: FDA-Public Use
  Company Number: CA-PFIZER INC-2018281564

PATIENT
  Sex: Female

DRUGS (1)
  1. ADVIL [Suspect]
     Active Substance: IBUPROFEN
     Indication: PAIN
     Dosage: UNK (ON AND OFF THE MEDICATION)
     Dates: start: 201801

REACTIONS (2)
  - Drug ineffective [Unknown]
  - Foot fracture [Unknown]

NARRATIVE: CASE EVENT DATE: 20180603
